FAERS Safety Report 16903989 (Version 1)
Quarter: 2019Q4

REPORT INFORMATION
  Report Type: Spontaneous
  Country: US (occurrence: US)
  Receive Date: 20191009
  Receipt Date: 20191009
  Transmission Date: 20200122
  Serious: Yes (Death)
  Sender: FDA-Public Use
  Company Number: None

PATIENT
  Age: 70 Year
  Sex: Female

DRUGS (1)
  1. AFINITOR [Suspect]
     Active Substance: EVEROLIMUS
     Indication: PANCREATIC CARCINOMA
     Dosage: 5 MG ORAL MON, WED, FRIDAY?
     Route: 048
     Dates: start: 20190424, end: 20190525

REACTIONS (1)
  - Death [None]

NARRATIVE: CASE EVENT DATE: 20190525
